FAERS Safety Report 10356359 (Version 1)
Quarter: 2014Q3

REPORT INFORMATION
  Report Type: Spontaneous
  Country: FR (occurrence: FR)
  Receive Date: 20140801
  Receipt Date: 20140801
  Transmission Date: 20150326
  Serious: Yes (Hospitalization)
  Sender: FDA-Public Use
  Company Number: FR-ASTRAZENECA-2014SE53659

PATIENT
  Age: 28881 Day
  Sex: Female

DRUGS (6)
  1. OLMETEC [Suspect]
     Active Substance: OLMESARTAN MEDOXOMIL
     Indication: HYPERTENSION
     Route: 048
     Dates: end: 20140621
  2. TENORMIN [Concomitant]
     Active Substance: ATENOLOL
  3. ESOMEPRAZOLE MAGNESIUM. [Suspect]
     Active Substance: ESOMEPRAZOLE MAGNESIUM
     Route: 048
     Dates: end: 20140626
  4. ESBERIVEN [Concomitant]
     Active Substance: TROXERUTIN
  5. MODURETIC 5-50 [Suspect]
     Active Substance: AMILORIDE HYDROCHLORIDE\HYDROCHLOROTHIAZIDE
     Indication: HYPERTENSION
     Route: 048
     Dates: end: 20140620
  6. ADVILMED [Concomitant]

REACTIONS (10)
  - Hypokalaemia [Unknown]
  - Vomiting [Unknown]
  - Asthenia [Unknown]
  - Confusional state [Recovered/Resolved]
  - Balance disorder [Unknown]
  - Nausea [Unknown]
  - Bulimia nervosa [Unknown]
  - Dehydration [Unknown]
  - Decreased appetite [Unknown]
  - Hyponatraemia [Recovered/Resolved]

NARRATIVE: CASE EVENT DATE: 20140616
